FAERS Safety Report 22022076 (Version 1)
Quarter: 2023Q1

REPORT INFORMATION
  Report Type: Spontaneous
  Country: AU (occurrence: AU)
  Receive Date: 20230222
  Receipt Date: 20230222
  Transmission Date: 20230418
  Serious: Yes (Other)
  Sender: FDA-Public Use
  Company Number: AU-TEVA-2022-AU-2065090

PATIENT
  Age: 31 Year
  Sex: Female

DRUGS (1)
  1. AJOVY [Suspect]
     Active Substance: FREMANEZUMAB-VFRM
     Indication: Product used for unknown indication
     Route: 065

REACTIONS (18)
  - Constipation [Not Recovered/Not Resolved]
  - Dizziness [Not Recovered/Not Resolved]
  - Fatigue [Not Recovered/Not Resolved]
  - Insomnia [Not Recovered/Not Resolved]
  - Myalgia [Not Recovered/Not Resolved]
  - Nausea [Not Recovered/Not Resolved]
  - Sleep terror [Not Recovered/Not Resolved]
  - Vascular injury [Not Recovered/Not Resolved]
  - Vertigo [Not Recovered/Not Resolved]
  - Thrombosis [Unknown]
  - Malaise [Unknown]
  - Heart rate increased [Unknown]
  - Hypotension [Unknown]
  - Syncope [Unknown]
  - Muscular weakness [Unknown]
  - Dyspnoea [Unknown]
  - Menstrual disorder [Unknown]
  - Feeling abnormal [Unknown]

NARRATIVE: CASE EVENT DATE: 20220106
